FAERS Safety Report 9487751 (Version 3)
Quarter: 2016Q1

REPORT INFORMATION
  Report Type: Spontaneous
  Country: US (occurrence: US)
  Receive Date: 20130725
  Receipt Date: 20160311
  Transmission Date: 20160526
  Serious: Yes (Hospitalization, Other)
  Sender: FDA-Public Use
  Company Number: US-GLAXOSMITHKLINE-A0899144A

PATIENT
  Sex: Male
  Weight: 110.5 kg

DRUGS (1)
  1. AVANDIA [Suspect]
     Active Substance: ROSIGLITAZONE MALEATE
     Indication: DIABETES MELLITUS
     Dosage: 2 MG, 1D
     Route: 048
     Dates: start: 200509, end: 200610

REACTIONS (6)
  - Myocardial infarction [Recovering/Resolving]
  - Oedema peripheral [Recovered/Resolved]
  - Hypertensive heart disease [Unknown]
  - Arteriosclerosis coronary artery [Unknown]
  - Cerebrovascular accident [Unknown]
  - Injury [Unknown]
